FAERS Safety Report 25239276 (Version 2)
Quarter: 2025Q3

REPORT INFORMATION
  Report Type: Spontaneous
  Country: JP (occurrence: JP)
  Receive Date: 20250425
  Receipt Date: 20250707
  Transmission Date: 20251020
  Serious: Yes (Hospitalization, Other)
  Sender: ABBVIE
  Company Number: JP-JNJFOC-20250428859

PATIENT
  Sex: Male

DRUGS (1)
  1. IMBRUVICA [Suspect]
     Active Substance: IBRUTINIB
     Indication: Mantle cell lymphoma refractory
     Route: 048
     Dates: start: 202411, end: 20250403

REACTIONS (3)
  - Cardiac failure [Not Recovered/Not Resolved]
  - White blood cell count decreased [Unknown]
  - Pleural effusion [Not Recovered/Not Resolved]
